FAERS Safety Report 11741650 (Version 1)
Quarter: 2015Q4

REPORT INFORMATION
  Report Type: Spontaneous
  Country: US (occurrence: None)
  Receive Date: 20151113
  Receipt Date: 20151113
  Transmission Date: 20160304
  Serious: Yes (Disabling, Other)
  Sender: FDA-Public Use
  Company Number: None

PATIENT
  Age: 59 Year
  Sex: Female
  Weight: 72.58 kg

DRUGS (3)
  1. GENERIC EFFEXOR [Concomitant]
  2. VITAMIN D [Concomitant]
     Active Substance: CHOLECALCIFEROL
  3. WELCHOL [Suspect]
     Active Substance: COLESEVELAM HYDROCHLORIDE
     Indication: BLOOD CHOLESTEROL INCREASED
     Dates: start: 20140410, end: 20140413

REACTIONS (7)
  - Peripheral swelling [None]
  - Impaired work ability [None]
  - Joint swelling [None]
  - Economic problem [None]
  - Tendon disorder [None]
  - Nerve compression [None]
  - Swelling [None]

NARRATIVE: CASE EVENT DATE: 20150415
